FAERS Safety Report 6006493-0 (Version None)
Quarter: 2008Q4

REPORT INFORMATION
  Report Type: 
  Country: None (occurrence: None)
  Receive Date: 20081215
  Receipt Date: 20081201
  Transmission Date: 20090506
  Serious: Yes (Hospitalization)
  Sender: FDA-Public Use
  Company Number: 2008AL012081

PATIENT
  Age: 44 Year
  Sex: Female

DRUGS (2)
  1. IRINOTECAN HYDROCHLORIDE INJECTION [Suspect]
     Indication: CERVIX CARCINOMA
     Dosage: 576 MG; IV
     Route: 042
  2. MITOMYCIN [Concomitant]

REACTIONS (7)
  - BLOOD FOLLICLE STIMULATING HORMONE INCREASED [None]
  - BLOOD LUTEINISING HORMONE INCREASED [None]
  - MALAISE [None]
  - MENOPAUSAL SYMPTOMS [None]
  - OESTRADIOL DECREASED [None]
  - OVARIAN DISORDER [None]
  - THERAPEUTIC RESPONSE DECREASED [None]
